FAERS Safety Report 10219772 (Version 1)
Quarter: 2014Q2

REPORT INFORMATION
  Report Type: Spontaneous
  Country: US (occurrence: US)
  Receive Date: 20140605
  Receipt Date: 20140605
  Transmission Date: 20141212
  Serious: Yes (Hospitalization, Other)
  Sender: FDA-Public Use
  Company Number: US-PFIZER INC-2014151542

PATIENT
  Sex: 0

DRUGS (1)
  1. TIKOSYN [Suspect]
     Dosage: 500 UG, 2X/DAY
     Dates: start: 201402

REACTIONS (2)
  - Oesophageal disorder [Unknown]
  - Atrial fibrillation [Unknown]
